FAERS Safety Report 5075628-9 (Version None)
Quarter: 2006Q3

REPORT INFORMATION
  Report Type: 
  Country: None (occurrence: None)
  Receive Date: 20060807
  Receipt Date: 20060727
  Transmission Date: 20061208
  Serious: Yes (Hospitalization)
  Sender: FDA-Public Use
  Company Number: S06-USA-02980-01

PATIENT
  Age: 54 Year
  Sex: Male

DRUGS (1)
  1. LEXAPRO [Suspect]
     Indication: DEPRESSION
     Dosage: 20 MG QD PO
     Route: 048
     Dates: start: 20050701

REACTIONS (3)
  - FEELING ABNORMAL [None]
  - GUN SHOT WOUND [None]
  - SUICIDE ATTEMPT [None]
